FAERS Safety Report 12863811 (Version 3)
Quarter: 2016Q4

REPORT INFORMATION
  Report Type: Report from Study
  Country: CA (occurrence: CA)
  Receive Date: 20161019
  Receipt Date: 20161124
  Transmission Date: 20170207
  Serious: Yes (Hospitalization)
  Sender: FDA-Public Use
  Company Number: CA-TAKEDA-2016TUS011913

PATIENT
  Age: 80 Year
  Sex: Female

DRUGS (5)
  1. PREDNISONE. [Concomitant]
     Active Substance: PREDNISONE
     Dosage: UNK
  2. MOXIFLOXACIN. [Suspect]
     Active Substance: MOXIFLOXACIN
     Indication: BRONCHITIS
     Dosage: 400 MG, QD
     Route: 065
     Dates: start: 20160927, end: 20161004
  3. VEDOLIZUMAB [Suspect]
     Active Substance: VEDOLIZUMAB
     Indication: CROHN^S DISEASE
     Dosage: 300 MG, UNK
     Route: 042
     Dates: start: 20160621, end: 20161013
  4. AZATHIOPRINE. [Concomitant]
     Active Substance: AZATHIOPRINE
     Dosage: UNK
     Dates: start: 2012
  5. PROLIA [Concomitant]
     Active Substance: DENOSUMAB
     Dosage: UNK UNK, Q6MONTHS
     Dates: start: 20160601

REACTIONS (10)
  - Sinusitis [Unknown]
  - Headache [Unknown]
  - Conjunctivitis [Unknown]
  - Dizziness [Unknown]
  - Fatigue [Unknown]
  - Bronchitis [Not Recovered/Not Resolved]
  - Ear pain [Recovered/Resolved]
  - Lung infection [Not Recovered/Not Resolved]
  - Dehydration [Unknown]
  - Crohn^s disease [Recovered/Resolved]

NARRATIVE: CASE EVENT DATE: 20160804
